FAERS Safety Report 6447500-0 (Version None)
Quarter: 2009Q4

REPORT INFORMATION
  Report Type: 
  Country: None (occurrence: None)
  Receive Date: 20091119
  Receipt Date: 20090324
  Transmission Date: 20100525
  Serious: Yes (Other)
  Sender: FDA-Public Use
  Company Number: US-AMGEN-COG339883

PATIENT
  Sex: Female

DRUGS (1)
  1. ENBREL [Suspect]
     Indication: RHEUMATOID ARTHRITIS
     Route: 058
     Dates: start: 20080829

REACTIONS (8)
  - GASTROOESOPHAGEAL REFLUX DISEASE [None]
  - INJECTION SITE HAEMATOMA [None]
  - IRRITABLE BOWEL SYNDROME [None]
  - RHEUMATOID ARTHRITIS [None]
  - SCRATCH [None]
  - SKIN CANCER [None]
  - STAPHYLOCOCCAL INFECTION [None]
  - THYROID DISORDER [None]
